FAERS Safety Report 6883428-X (Version None)
Quarter: 2010Q3

REPORT INFORMATION
  Report Type: 
  Country: None (occurrence: None)
  Receive Date: 20100727
  Receipt Date: 20100715
  Transmission Date: 20110219
  Serious: Yes (Hospitalization)
  Sender: FDA-Public Use
  Company Number: 7010942

PATIENT
  Age: 31 Year
  Sex: Female

DRUGS (6)
  1. GONAL-F [Suspect]
     Indication: OVULATION INDUCTION
  2. CETROTIDE [Suspect]
     Indication: OVULATION INDUCTION
     Dosage: 0.25MG
  3. HUMEGON [Suspect]
     Indication: OVULATION INDUCTION
  4. PREGNYL [Suspect]
     Indication: OVULATION INDUCTION
  5. RITODRIN (RITODRINE) [Concomitant]
  6. NIFEDIPIN (NIFEDIPINE) [Concomitant]

REACTIONS (8)
  - ABDOMINAL MASS [None]
  - BORDERLINE OVARIAN TUMOUR [None]
  - CAESAREAN SECTION [None]
  - DRUG EXPOSURE BEFORE PREGNANCY [None]
  - PREGNANCY [None]
  - PREMATURE LABOUR [None]
  - PREMATURE RUPTURE OF MEMBRANES [None]
  - TWIN PREGNANCY [None]
